FAERS Safety Report 14165720 (Version 2)
Quarter: 2018Q1

REPORT INFORMATION
  Report Type: Spontaneous
  Country: JP (occurrence: JP)
  Receive Date: 20171107
  Receipt Date: 20180216
  Transmission Date: 20180508
  Serious: Yes (Other)
  Sender: FDA-Public Use
  Company Number: JP-UCBSA-2017044023

PATIENT
  Age: 41 Year
  Sex: Female

DRUGS (1)
  1. CIMZIA [Suspect]
     Active Substance: CERTOLIZUMAB PEGOL
     Indication: RHEUMATOID ARTHRITIS
     Dosage: UNK
     Route: 058
     Dates: start: 20160726, end: 201610

REACTIONS (2)
  - Pregnancy [Unknown]
  - Abortion spontaneous [Recovering/Resolving]

NARRATIVE: CASE EVENT DATE: 201610
